FAERS Safety Report 4798109-6 (Version None)
Quarter: 2005Q4

REPORT INFORMATION
  Report Type: 
  Country: None (occurrence: None)
  Receive Date: 20051011
  Receipt Date: 20051011
  Transmission Date: 20060501
  Serious: Yes (Other)
  Sender: FDA-Public Use
  Company Number: None

PATIENT
  Age: 48 Year
  Sex: Female

DRUGS (3)
  1. DOCETAXEL [Suspect]
     Indication: BREAST CANCER STAGE II
     Dosage: 100MG/M2
     Dates: start: 20021112
  2. ADRIA + CYTOXAN [Concomitant]
  3. TAXOTERE [Concomitant]

REACTIONS (7)
  - ALOPECIA [None]
  - LACRIMATION INCREASED [None]
  - NAIL DISORDER [None]
  - NEUROPATHY [None]
  - OEDEMA PERIPHERAL [None]
  - RASH [None]
  - WEIGHT INCREASED [None]
